FAERS Safety Report 11619804 (Version 3)
Quarter: 2015Q4

REPORT INFORMATION
  Report Type: Spontaneous
  Country: US (occurrence: US)
  Receive Date: 20151012
  Receipt Date: 20151119
  Transmission Date: 20160304
  Serious: Yes (Hospitalization, Other)
  Sender: FDA-Public Use
  Company Number: US-PFIZER INC-2015335349

PATIENT
  Age: 50 Year
  Sex: Male
  Weight: 54 kg

DRUGS (4)
  1. DILANTIN [Suspect]
     Active Substance: PHENYTOIN
     Dosage: 500 MG, DAILY
     Route: 048
  2. DILANTIN [Suspect]
     Active Substance: PHENYTOIN
     Indication: EPILEPSY
     Dosage: 3 DF DAILY
     Route: 048
     Dates: start: 1995
  3. DILANTIN [Suspect]
     Active Substance: PHENYTOIN
     Dosage: 100 MG EXTENDED RELEASE CAPSULE, 2X/DAY 1 IN MORNING, 1 AT NIGHT
  4. LISINOPRIL HCTZ [Concomitant]
     Active Substance: HYDROCHLOROTHIAZIDE\LISINOPRIL
     Indication: HYPERTENSION
     Dosage: 20-25MG, 1X/DAY
     Route: 048

REACTIONS (9)
  - Condition aggravated [Not Recovered/Not Resolved]
  - Joint injury [Recovered/Resolved]
  - Seizure [Not Recovered/Not Resolved]
  - Hypokinesia [Recovered/Resolved]
  - Confusional state [Recovered/Resolved]
  - Haemorrhage intracranial [Recovered/Resolved]
  - Fall [Recovered/Resolved]
  - Head injury [Recovered/Resolved]
  - Dysarthria [Recovered/Resolved]

NARRATIVE: CASE EVENT DATE: 201509
